FAERS Safety Report 4787625-9 (Version None)
Quarter: 2005Q4

REPORT INFORMATION
  Report Type: 
  Country: None (occurrence: None)
  Receive Date: 20051003
  Receipt Date: 20050922
  Transmission Date: 20060501
  Serious: Yes (Hospitalization)
  Sender: FDA-Public Use
  Company Number: 2005124432

PATIENT
  Age: 21 Year
  Sex: Female
  Weight: 50 kg

DRUGS (1)
  1. DEPO-PROVERA [Suspect]
     Indication: ILL-DEFINED DISORDER
     Dosage: 150 MG (150 MG, FIRST INJECTION / TRIMESTRAL), INTRAMUSCULAR
     Route: 030
     Dates: start: 20050715, end: 20050715

REACTIONS (2)
  - CARDIAC DISORDER [None]
  - CHEST PAIN [None]
